FAERS Safety Report 21122476 (Version 1)
Quarter: 2022Q3

REPORT INFORMATION
  Report Type: Spontaneous
  Country: CA (occurrence: None)
  Receive Date: 20220723
  Receipt Date: 20220723
  Transmission Date: 20221026
  Serious: Yes (Hospitalization, Other)
  Sender: FDA-Public Use
  Company Number: 2022A259061

PATIENT
  Age: 59 Year
  Sex: Female
  Weight: 86 kg

DRUGS (4)
  1. IMFINZI [Suspect]
     Active Substance: DURVALUMAB
     Indication: Lung neoplasm malignant
     Dosage: 1500.0MG UNKNOWN
     Route: 042
  2. ASPIRIN [Concomitant]
     Active Substance: ASPIRIN
  3. OMEPRAZOLE [Concomitant]
     Active Substance: OMEPRAZOLE
  4. ALBUTEROL [Concomitant]
     Active Substance: ALBUTEROL
     Route: 042

REACTIONS (1)
  - Febrile neutropenia [Recovered/Resolved]
